FAERS Safety Report 6999349-8 (Version None)
Quarter: 2010Q3

REPORT INFORMATION
  Report Type: 
  Country: None (occurrence: None)
  Receive Date: 20100920
  Receipt Date: 20100702
  Transmission Date: 20110219
  Serious: No
  Sender: FDA-Public Use
  Company Number: US-ASTRAZENECA-2010SE31098

PATIENT
  Age: 41 Year
  Sex: Male

DRUGS (4)
  1. SEROQUEL XR [Suspect]
     Indication: ANXIETY DISORDER
     Route: 048
     Dates: start: 20100301
  2. TOPROL-XL [Concomitant]
  3. PAXIL [Concomitant]
  4. XANAX [Concomitant]
     Dosage: PRN

REACTIONS (3)
  - AMNESIA [None]
  - FRACTURE [None]
  - ROAD TRAFFIC ACCIDENT [None]
